FAERS Safety Report 11336613 (Version 1)
Quarter: 2015Q3

REPORT INFORMATION
  Report Type: Spontaneous
  Country: FI (occurrence: FI)
  Receive Date: 20150804
  Receipt Date: 20150804
  Transmission Date: 20151125
  Serious: Yes (Hospitalization, Other)
  Sender: FDA-Public Use
  Company Number: FI-AMGEN-FINSP2015077320

PATIENT
  Age: 41 Year
  Sex: Female
  Weight: 57 kg

DRUGS (1)
  1. NEULASTA [Suspect]
     Active Substance: PEGFILGRASTIM
     Indication: NEUTROPENIA
     Dosage: 6 MG, PER DAY
     Route: 065
     Dates: start: 20150723

REACTIONS (2)
  - Accidental overdose [Unknown]
  - Bone pain [Unknown]

NARRATIVE: CASE EVENT DATE: 201507
